FAERS Safety Report 9164651 (Version 1)
Quarter: 2013Q1

REPORT INFORMATION
  Report Type: Spontaneous
  Country: US (occurrence: None)
  Receive Date: 20130314
  Receipt Date: 20130314
  Transmission Date: 20140127
  Serious: Yes (Death, Life-Threatening, Disabling)
  Sender: FDA-Public Use
  Company Number: None

PATIENT
  Age: 69 Year
  Sex: Female
  Weight: 71.22 kg

DRUGS (1)
  1. MACRODANTIN [Suspect]
     Indication: URINARY TRACT INFECTION
     Route: 048
     Dates: end: 20101130

REACTIONS (1)
  - Pulmonary fibrosis [None]
